FAERS Safety Report 7981252-8 (Version None)
Quarter: 2011Q4

REPORT INFORMATION
  Report Type: 
  Country: None (occurrence: None)
  Receive Date: 20111212
  Receipt Date: 20111129
  Transmission Date: 20120403
  Serious: Yes (Hospitalization)
  Sender: FDA-Public Use
  Company Number: 1000021868

PATIENT
  Age: 51 Year
  Sex: Male

DRUGS (3)
  1. MILNACIPRAN (MILNACIPRAN HYDROCHLORIDE) (50 MILLIGRAM, CAPSULES) [Suspect]
     Indication: DEPRESSION
     Dosage: 100 MG (100 MG, 1 IN 1 D), ORAL
     Route: 048
     Dates: start: 20110516, end: 20110528
  2. TEGRETOL [Suspect]
     Indication: FIBROMYALGIA
     Dosage: 100 MG (100 MG, 1 IN 1 D), ORAL
     Route: 048
     Dates: start: 20110526, end: 20110530
  3. RIVOTRIL (CLONAZEPAM) (DROPS (FOR OAL USE)) [Suspect]
     Indication: FIBROMYALGIA
     Dosage: 60 DROPS OF 2.5 MG/ML (60 GTT, 1IN 1 D), ORAL
     Route: 048
     Dates: start: 20110526, end: 20110530

REACTIONS (17)
  - RASH PUSTULAR [None]
  - RASH MACULO-PAPULAR [None]
  - LIP OEDEMA [None]
  - CONJUNCTIVAL HYPERAEMIA [None]
  - EYELID OEDEMA [None]
  - TOXIC SKIN ERUPTION [None]
  - CONJUNCTIVITIS [None]
  - BURNING SENSATION [None]
  - DERMATITIS BULLOUS [None]
  - PURPURA [None]
  - RASH GENERALISED [None]
  - PRURITUS [None]
  - ASPARTATE AMINOTRANSFERASE INCREASED [None]
  - CHEILITIS [None]
  - LYMPHADENOPATHY [None]
  - STAPHYLOCOCCAL INFECTION [None]
  - ALANINE AMINOTRANSFERASE INCREASED [None]
